FAERS Safety Report 4295862-5 (Version None)
Quarter: 2004Q1

REPORT INFORMATION
  Report Type: 
  Country: None (occurrence: None)
  Receive Date: 20040216
  Receipt Date: 20031121
  Transmission Date: 20041129
  Serious: No
  Sender: FDA-Public Use
  Company Number: US-GLAXOSMITHKLINE-A0440849A

PATIENT
  Sex: Female

DRUGS (12)
  1. LAMICTAL [Suspect]
     Indication: BIPOLAR DISORDER
     Dosage: 50MG PER DAY
     Route: 048
     Dates: start: 20031101
  2. RISPERDAL [Suspect]
  3. REMERON [Concomitant]
  4. CELEXA [Concomitant]
  5. ZYPREXA [Concomitant]
  6. KLONOPIN [Concomitant]
  7. PREDNISONE [Concomitant]
  8. THEOPHYLLINE [Concomitant]
  9. ATROVENT [Concomitant]
  10. SEREVENT [Concomitant]
  11. VERAPAMIL [Concomitant]
  12. UNSPECIFIED MEDICATION [Concomitant]

REACTIONS (3)
  - AGGRESSION [None]
  - AGITATION [None]
  - DYSPNOEA [None]
